FAERS Safety Report 15363778 (Version 1)
Quarter: 2018Q3

REPORT INFORMATION
  Report Type: Spontaneous
  Country: US (occurrence: US)
  Receive Date: 20180908
  Receipt Date: 20180908
  Transmission Date: 20181010
  Serious: No
  Sender: FDA-Public Use
  Company Number: US-009507513-1606USA008436

PATIENT
  Age: 28 Year
  Sex: Female

DRUGS (5)
  1. EMTRICITABINE (+) TENOFOVIR DISOPROXIL FUMARATE [Suspect]
     Active Substance: EMTRICITABINE\TENOFOVIR DISOPROXIL
     Dosage: COURSE NUMBER: 1; 1 (UNIT UNSPECIFIED), TOTAL DAILY DOSE
     Route: 048
  2. DARUNAVIR [Suspect]
     Active Substance: DARUNAVIR
     Dosage: COURSE NUMBER: 1; 1200 (UNIT UNSPECIFIED)
     Route: 048
  3. LAMIVUDINE AND ZIDOVUDINE [Suspect]
     Active Substance: LAMIVUDINE\ZIDOVUDINE
     Dosage: COURSE NUMBER: 1; 2 (UNIT UNSPECIFIED), TOTAL DAILY DOSE
     Route: 048
  4. ISENTRESS [Suspect]
     Active Substance: RALTEGRAVIR POTASSIUM
     Dosage: COURSE NUMBER: 1; 800 (UNIT UNSPECIFIED), TOTAL DAILY DOSE
     Route: 048
  5. RITONAVIR. [Suspect]
     Active Substance: RITONAVIR
     Dosage: COURSE NUMBER: 1; 100 (UNIT UNSPECIFIED)
     Route: 048

REACTIONS (2)
  - Premature delivery [Unknown]
  - Maternal exposure during pregnancy [Recovered/Resolved]

NARRATIVE: CASE EVENT DATE: 20151118
